FAERS Safety Report 10844467 (Version 3)
Quarter: 2015Q1

REPORT INFORMATION
  Report Type: Report from Study
  Country: KR (occurrence: KR)
  Receive Date: 20150220
  Receipt Date: 20150306
  Transmission Date: 20150721
  Serious: Yes (Death, Hospitalization)
  Sender: FDA-Public Use
  Company Number: KR-SA-2015SA018981

PATIENT
  Age: 80 Year
  Sex: Male
  Weight: 66 kg

DRUGS (2)
  1. DIAMICRON MR [Concomitant]
     Active Substance: GLICLAZIDE
     Indication: DIABETES MELLITUS
     Route: 048
     Dates: start: 20141217
  2. LANTUS [Suspect]
     Active Substance: INSULIN GLARGINE
     Indication: DIABETES MELLITUS
     Dosage: DOSE:24 UNIT(S)
     Route: 058
     Dates: start: 20141217

REACTIONS (4)
  - Dyspnoea [Fatal]
  - Blood glucose increased [Unknown]
  - Glycosylated haemoglobin increased [Unknown]
  - Pneumonia [Fatal]

NARRATIVE: CASE EVENT DATE: 20141217
